FAERS Safety Report 9175467 (Version 4)
Quarter: 2013Q2

REPORT INFORMATION
  Report Type: Report from Study
  Country: US (occurrence: BE)
  Receive Date: 20130320
  Receipt Date: 20130506
  Transmission Date: 20140414
  Serious: Yes (Hospitalization)
  Sender: FDA-Public Use
  Company Number: BE-PFIZER INC-2013087769

PATIENT
  Age: 56 Year
  Sex: Male

DRUGS (10)
  1. METHYLPREDNISOLONE [Suspect]
     Indication: RENAL TRANSPLANT
     Dosage: UNK
     Dates: start: 20070226
  2. BELATACEPT [Suspect]
     Indication: RENAL TRANSPLANT
     Dosage: 350 MG
     Route: 042
     Dates: start: 20070222
  3. CELLCEPT [Suspect]
     Indication: RENAL TRANSPLANT
     Dosage: 1 GRAM, 1 DAY
     Dates: start: 20070223
  4. CARDIOASPIRINE [Concomitant]
     Dosage: UNK
     Dates: start: 20070620
  5. COVERSYL [Concomitant]
     Dosage: UNK
     Dates: start: 20070719
  6. D-CURE [Concomitant]
     Dosage: UNK
     Dates: start: 20100517
  7. LIPITOR [Concomitant]
     Dosage: UNK
     Dates: start: 20070807
  8. TEMESTA [Concomitant]
     Dosage: UNK
  9. VALIXA [Concomitant]
     Dosage: UNK
  10. FOSAMAX [Concomitant]
     Dosage: UNK

REACTIONS (4)
  - Tenosynovitis [Recovered/Resolved with Sequelae]
  - Renal failure acute [Recovered/Resolved with Sequelae]
  - Joint swelling [Not Recovered/Not Resolved]
  - Malaise [Not Recovered/Not Resolved]
